FAERS Safety Report 21675430 (Version 1)
Quarter: 2022Q4

REPORT INFORMATION
  Report Type: Spontaneous
  Country: US (occurrence: None)
  Receive Date: 20221202
  Receipt Date: 20221202
  Transmission Date: 20230112
  Serious: Yes (Other)
  Sender: FDA-Public Use
  Company Number: None

PATIENT
  Age: 29 Year
  Sex: Male

DRUGS (7)
  1. HUMIRA [Suspect]
     Active Substance: ADALIMUMAB
     Indication: Crohn^s disease
     Dosage: OTHER FREQUENCY : EVERY OTHER WEEK;?
     Route: 058
     Dates: start: 20220906, end: 20221130
  2. Zyrtec-D 12 Hour tablets OTC [Concomitant]
     Dates: start: 20220901
  3. Advair Diskcus 250/50 MCH (yellow) 60 [Concomitant]
     Dates: start: 20220901
  4. Albuterol HFA INH (200 Puffs) 6.7 gm [Concomitant]
     Dates: start: 20220901
  5. Omeprazole 20 mg Capules [Concomitant]
     Dates: start: 20220901
  6. Mesalamine 800mg DR tablets [Concomitant]
     Dates: start: 20220901
  7. Prednisolone AC 1% Ophth susp 15 ml [Concomitant]
     Dates: start: 20220901

REACTIONS (14)
  - Drug hypersensitivity [None]
  - Abdominal pain upper [None]
  - Diarrhoea [None]
  - Pyrexia [None]
  - Chills [None]
  - Arthralgia [None]
  - Neck pain [None]
  - Arthralgia [None]
  - Central pain syndrome [None]
  - Chest discomfort [None]
  - Dyspnoea [None]
  - Injection site swelling [None]
  - Influenza [None]
  - Infection [None]

NARRATIVE: CASE EVENT DATE: 20221129
